FAERS Safety Report 20788925 (Version 1)
Quarter: 2022Q2

REPORT INFORMATION
  Report Type: Spontaneous
  Country: FR (occurrence: FR)
  Receive Date: 20220505
  Receipt Date: 20220505
  Transmission Date: 20220720
  Serious: Yes (Other)
  Sender: FDA-Public Use
  Company Number: None

PATIENT
  Age: 68 Year
  Sex: Male

DRUGS (2)
  1. VANCOMYCIN [Suspect]
     Active Substance: VANCOMYCIN
     Indication: Bacterial infection
     Dosage: 2.25 G/D
     Route: 041
     Dates: start: 20210722, end: 20210727
  2. CEFAZOLIN [Suspect]
     Active Substance: CEFAZOLIN
     Indication: Bacterial infection
     Dosage: 2G*3X/J
     Route: 041
     Dates: start: 20210727, end: 20210807

REACTIONS (1)
  - Cutaneous vasculitis [Recovering/Resolving]

NARRATIVE: CASE EVENT DATE: 20210801
